FAERS Safety Report 6518147-2 (Version None)
Quarter: 2009Q4

REPORT INFORMATION
  Report Type: 
  Country: None (occurrence: None)
  Receive Date: 20091218
  Receipt Date: 20091203
  Transmission Date: 20100525
  Serious: Yes (Life-Threatening, Other)
  Sender: FDA-Public Use
  Company Number: ACO_00622_2009

PATIENT
  Sex: Female

DRUGS (6)
  1. SIRDALUD MR (SIRDALUD MR - TIZANIDINE HYDROCHLORIDE) (NOT SPECIFIED) [Suspect]
     Indication: MUSCLE SPASMS
     Dosage: (6 MG, PER DAY)
     Dates: start: 20071001, end: 20071201
  2. LEXOTANIL (LEXOTANIL - BROMAZEPAM) (NOT SPECIFIED) [Suspect]
     Indication: ANXIETY DISORDER
     Dosage: (1.5 MG, PER DAY)
     Dates: start: 20060201, end: 20060901
  3. STILNOX /00914901/ (STILNOX - ZOLPIDEM) (NOT SPECIFIED) [Suspect]
     Indication: DRUG USE FOR UNKNOWN INDICATION
     Dosage: (10 MG, /DAY)
     Dates: start: 20060901, end: 20070901
  4. CITALOPRAM HYDROBROMIDE [Suspect]
     Indication: BIPOLAR DISORDER
     Dosage: (20 MG, PER DAY)
     Dates: start: 20061101, end: 20070301
  5. ABILIFY [Suspect]
     Indication: SCHIZOPHRENIA
     Dosage: (5 - 15 MG/DAY)
     Dates: start: 20070301, end: 20071201
  6. REMERON [Suspect]
     Indication: BIPOLAR DISORDER
     Dosage: (15 MG, /DAY)
     Dates: start: 20071001, end: 20071201

REACTIONS (10)
  - AGGRESSION [None]
  - FATIGUE [None]
  - IRRITABILITY [None]
  - NIGHTMARE [None]
  - PERSONALITY DISORDER [None]
  - SELF-INJURIOUS IDEATION [None]
  - SUICIDE ATTEMPT [None]
  - TREMOR [None]
  - VISION BLURRED [None]
  - VOMITING [None]
